FAERS Safety Report 6802206-0 (Version None)
Quarter: 2010Q2

REPORT INFORMATION
  Report Type: 
  Country: None (occurrence: None)
  Receive Date: 20100629
  Receipt Date: 20080110
  Transmission Date: 20101027
  Serious: No
  Sender: FDA-Public Use
  Company Number: US-PFIZER INC-2007051229

PATIENT
  Sex: Female
  Weight: 65.909 kg

DRUGS (11)
  1. ARTHROTEC [Suspect]
     Dosage: (75 MG/200MCG) 1 TO 2 TABLETS A DAY
     Dates: start: 19990205
  2. SYNTHROID [Concomitant]
  3. PRAVACHOL [Concomitant]
  4. FOSAMAX [Concomitant]
  5. MONTELUKAST SODIUM [Concomitant]
  6. PREDNISOLONE [Concomitant]
  7. SALBUTAMOL SULFATE [Concomitant]
  8. ESTRACE [Concomitant]
  9. ZYRTEC [Concomitant]
  10. NASACORT [Concomitant]
  11. FLUTICASONE PROPIONATE [Concomitant]

REACTIONS (1)
  - DRUG INEFFECTIVE [None]
